FAERS Safety Report 12380228 (Version 1)
Quarter: 2016Q2

REPORT INFORMATION
  Report Type: Spontaneous
  Country: PE (occurrence: PE)
  Receive Date: 20160518
  Receipt Date: 20160518
  Transmission Date: 20160815
  Serious: Yes (Other)
  Sender: FDA-Public Use
  Company Number: PE-PFIZER INC-2016239874

PATIENT
  Age: 80 Year
  Sex: Female

DRUGS (1)
  1. XALATAN [Suspect]
     Active Substance: LATANOPROST
     Dosage: 1 GTT (ON EACH EYE), DAILY
     Route: 047
     Dates: start: 2012

REACTIONS (4)
  - Malaise [Not Recovered/Not Resolved]
  - Oropharyngeal discomfort [Unknown]
  - Respiratory tract infection [Not Recovered/Not Resolved]
  - Throat irritation [Not Recovered/Not Resolved]
